FAERS Safety Report 8355832-4 (Version None)
Quarter: 2012Q2

REPORT INFORMATION
  Report Type: 
  Country: None (occurrence: None)
  Receive Date: 20120510
  Receipt Date: 20120425
  Transmission Date: 20120825
  Serious: Yes (Hospitalization)
  Sender: FDA-Public Use
  Company Number: 2012AP001204

PATIENT
  Age: 22 Year
  Sex: Female

DRUGS (2)
  1. LEVETIRACETAM [Suspect]
     Indication: CONVULSION
  2. DILANTIN [Suspect]
     Indication: CONVULSION

REACTIONS (9)
  - DRUG RASH WITH EOSINOPHILIA AND SYSTEMIC SYMPTOMS [None]
  - TACHYCARDIA [None]
  - HEPATITIS [None]
  - FACE OEDEMA [None]
  - PYREXIA [None]
  - LEUKOCYTOSIS [None]
  - ABDOMINAL DISTENSION [None]
  - PAIN [None]
  - ANTICONVULSANT DRUG LEVEL INCREASED [None]
